FAERS Safety Report 23276203 (Version 1)
Quarter: 2023Q4

REPORT INFORMATION
  Report Type: Spontaneous
  Country: DE (occurrence: DE)
  Receive Date: 20231208
  Receipt Date: 20231208
  Transmission Date: 20240109
  Serious: Yes (Life-Threatening, Hospitalization)
  Sender: FDA-Public Use
  Company Number: DE-MYLANLABS-2023M1130094

PATIENT
  Age: 37 Year
  Sex: Male

DRUGS (6)
  1. FENTANYL [Suspect]
     Active Substance: FENTANYL\FENTANYL CITRATE
     Indication: Induction of anaesthesia
     Dosage: 0.2 MILLIGRAM
     Route: 065
  2. ATRACURIUM [Suspect]
     Active Substance: ATRACURIUM
     Indication: Induction of anaesthesia
     Dosage: 25 MILLIGRAM
     Route: 065
  3. PROPOFOL [Suspect]
     Active Substance: PROPOFOL
     Indication: Induction and maintenance of anaesthesia
     Dosage: 180 MILLIGRAM
     Route: 065
  4. PROPOFOL [Suspect]
     Active Substance: PROPOFOL
     Dosage: 4 MILLIGRAM/KILOGRAM, QH
     Route: 065
  5. NEOSTIGMINE [Suspect]
     Active Substance: NEOSTIGMINE
     Indication: Neuromuscular blockade reversal
     Dosage: UNK
     Route: 065
  6. ATROPINE [Suspect]
     Active Substance: ATROPINE\ATROPINE SULFATE
     Indication: Neuromuscular blockade reversal
     Dosage: UNK
     Route: 065

REACTIONS (2)
  - Hyperthermia malignant [Recovering/Resolving]
  - Cardiac failure acute [Recovering/Resolving]
